FAERS Safety Report 8036652 (Version 7)
Quarter: 2013Q1

REPORT INFORMATION
  Report Type: Report from Study
  Country: JP (occurrence: JP)
  Receive Date: 20110715
  Receipt Date: 20130319
  Transmission Date: 20140127
  Serious: Yes (Other)
  Sender: FDA-Public Use
  Company Number: PHHY2010JP52187

PATIENT
  Age: 75 Year
  Sex: Male

DRUGS (20)
  1. AMN107 [Suspect]
     Indication: CHRONIC MYELOID LEUKAEMIA
     Dosage: 400 MG, DAILY
     Route: 048
     Dates: start: 20091111, end: 20110425
  2. AMN107 [Suspect]
     Dosage: 400 MG, DAILY
     Route: 048
     Dates: start: 20120203
  3. KREMEZIN [Concomitant]
     Dosage: 6 G, UNK
     Route: 048
     Dates: start: 200909
  4. SODIUM BICARBONATE [Concomitant]
     Dosage: 3 G, UNK
     Route: 048
     Dates: start: 20090902
  5. KALIMATE [Concomitant]
     Dosage: 15 G, UNK
     Route: 048
     Dates: start: 20090902
  6. PLATIBIT [Concomitant]
     Dosage: 0.2 UG, UNK
     Route: 048
     Dates: start: 20090902
  7. CONIEL [Concomitant]
     Dosage: 4 MG, UNK
     Route: 048
     Dates: start: 20090902
  8. LIVALO [Concomitant]
     Dosage: 2 MG, UNK
     Route: 048
     Dates: start: 20090902
  9. ZYLORIC [Concomitant]
     Dosage: 200 MG, UNK
     Route: 048
     Dates: start: 20090902, end: 20100316
  10. HIRUDOID [Concomitant]
     Indication: PROPHYLAXIS
     Dates: start: 20091221
  11. ANTEBATE [Concomitant]
     Dates: start: 20091221
  12. GLYMESASON [Concomitant]
     Indication: PROPHYLAXIS
     Dates: start: 20091221
  13. ALLOPURINOL [Concomitant]
     Dosage: 200 MG, UNK
     Route: 048
     Dates: start: 20100317
  14. EPINASTINE HYDROCHLORIDE [Concomitant]
     Dosage: 20 MG, UNK
     Route: 048
     Dates: start: 20100317
  15. LOXONIN [Concomitant]
     Indication: PAIN
     Dosage: 60 MG, UNK
     Route: 048
     Dates: start: 20100419
  16. MUCOSTA [Concomitant]
     Dosage: 100 MG, UNK
     Route: 048
     Dates: start: 20100419
  17. FLOMOX [Concomitant]
     Indication: PROPHYLAXIS
     Dosage: 100 MG, UNK
     Route: 048
     Dates: start: 20100419
  18. TALION [Concomitant]
     Indication: PROPHYLAXIS
     Dosage: 20 MG, UNK
     Route: 048
     Dates: start: 20100524
  19. PURSENID [Concomitant]
     Dosage: 1 DF
     Route: 048
  20. URIEF [Concomitant]
     Dosage: 2 DF
     Route: 048

REACTIONS (6)
  - Lipase increased [Not Recovered/Not Resolved]
  - Blood creatinine increased [Not Recovered/Not Resolved]
  - Blood urea increased [Not Recovered/Not Resolved]
  - Anaemia [Recovering/Resolving]
  - Blood potassium decreased [Recovered/Resolved]
  - Eosinophil count increased [Recovered/Resolved]
